FAERS Safety Report 11483259 (Version 2)
Quarter: 2015Q3

REPORT INFORMATION
  Report Type: Spontaneous
  Country: US (occurrence: US)
  Receive Date: 20150903
  Receipt Date: 20150903
  Transmission Date: 20151125
  Serious: No
  Sender: FDA-Public Use
  Company Number: US-ELI_LILLY_AND_COMPANY-US201204003446

PATIENT
  Age: 43 Year
  Sex: Female

DRUGS (2)
  1. CYMBALTA [Suspect]
     Active Substance: DULOXETINE HYDROCHLORIDE
     Dosage: 30 MG, QOD
     Dates: start: 201202, end: 20120320
  2. CYMBALTA [Suspect]
     Active Substance: DULOXETINE HYDROCHLORIDE
     Indication: ANXIETY
     Dosage: 30 MG, QD
     Dates: start: 201105

REACTIONS (15)
  - Muscle tightness [Unknown]
  - Nausea [Unknown]
  - Dysphagia [Unknown]
  - Headache [Unknown]
  - Feeling abnormal [Unknown]
  - Tremor [Unknown]
  - Paranoia [Unknown]
  - Agitation [Unknown]
  - Mental impairment [Unknown]
  - Memory impairment [Unknown]
  - Respiratory disorder [Unknown]
  - Tinnitus [Unknown]
  - Thinking abnormal [Unknown]
  - Drug withdrawal syndrome [Unknown]
  - Paraesthesia [Unknown]
